FAERS Safety Report 25644392 (Version 1)
Quarter: 2025Q3

REPORT INFORMATION
  Report Type: Spontaneous
  Country: EU (occurrence: EU)
  Receive Date: 20250805
  Receipt Date: 20250805
  Transmission Date: 20251021
  Serious: Yes (Other)
  Sender: NOVARTIS
  Company Number: None

PATIENT
  Age: 71 Year
  Sex: Female
  Weight: 57 kg

DRUGS (2)
  1. KISQALI [Suspect]
     Active Substance: RIBOCICLIB SUCCINATE
     Indication: Breast cancer recurrent
     Dosage: 600 MG, QD (DAL 13/11/2024 AL 03/12/2024 600 MG/DIEDAL 16/12/2024 AL 24/03/2025 400 MG/DIE DAL 09/04
     Route: 048
     Dates: start: 20241113, end: 20250423
  2. LETROZOLE [Concomitant]
     Active Substance: LETROZOLE
     Indication: Product used for unknown indication
     Route: 065

REACTIONS (2)
  - Transaminases increased [Recovering/Resolving]
  - Hepatitis acute [Not Recovered/Not Resolved]

NARRATIVE: CASE EVENT DATE: 20250310
